FAERS Safety Report 21935424 (Version 2)
Quarter: 2023Q2

REPORT INFORMATION
  Report Type: Spontaneous
  Country: GB (occurrence: GB)
  Receive Date: 20230201
  Receipt Date: 20230621
  Transmission Date: 20230721
  Serious: Yes (Other)
  Sender: FDA-Public Use
  Company Number: None

PATIENT

DRUGS (7)
  1. IBUPROFEN [Suspect]
     Active Substance: IBUPROFEN
     Indication: Ill-defined disorder
     Dosage: UNK
     Dates: start: 20230116
  2. AMOXICILLIN [Concomitant]
     Active Substance: AMOXICILLIN
     Indication: Ill-defined disorder
     Dosage: UNK, TAKE ONE 3 TIMES/DAY
     Route: 065
     Dates: start: 20221229, end: 20230103
  3. BENZYDAMINE HYDROCHLORIDE [Concomitant]
     Active Substance: BENZYDAMINE HYDROCHLORIDE
     Indication: Ill-defined disorder
     Dosage: UNK, 15ML EVERY 3 HRS
     Route: 065
     Dates: start: 20230116, end: 20230130
  4. CYCLIZINE [Concomitant]
     Active Substance: CYCLIZINE
     Indication: Ill-defined disorder
     Dosage: UNK, UP TO 3 TIMES A DAY
     Route: 065
     Dates: start: 20230116, end: 20230121
  5. PREDNISOLONE [Concomitant]
     Active Substance: PREDNISOLONE
     Indication: Ill-defined disorder
     Dosage: UNK, 6 TABLETS ONCE A DAY FOR 3 DAYS
     Route: 065
     Dates: start: 20230116, end: 20230119
  6. PROPRANOLOL [Concomitant]
     Active Substance: PROPRANOLOL HYDROCHLORIDE
     Indication: Ill-defined disorder
     Dosage: UNK, TAKE ONE TWO TIMES/DAY
     Route: 065
     Dates: start: 20230116
  7. SUMATRIPTAN [Concomitant]
     Active Substance: SUMATRIPTAN
     Indication: Ill-defined disorder
     Dosage: UNK, TAKE ONE TABLET FOR MIGRAINE ATTACK. IF SYMPTOM...
     Route: 065
     Dates: start: 20230116, end: 20230117

REACTIONS (1)
  - Gastric ulcer [Recovered/Resolved]

NARRATIVE: CASE EVENT DATE: 20230130
